FAERS Safety Report 11562385 (Version 2)
Quarter: 2016Q1

REPORT INFORMATION
  Report Type: Spontaneous
  Country: US (occurrence: US)
  Receive Date: 20150928
  Receipt Date: 20160108
  Transmission Date: 20160525
  Serious: No
  Sender: FDA-Public Use
  Company Number: US-GLAXOSMITHKLINE-US2015GSK110087

PATIENT
  Age: 61 Year
  Sex: Female

DRUGS (2)
  1. TANZEUM [Suspect]
     Active Substance: ALBIGLUTIDE
     Indication: TYPE 2 DIABETES MELLITUS
     Dosage: 30 MG, WE
     Dates: start: 20150706
  2. TANZEUM [Suspect]
     Active Substance: ALBIGLUTIDE
     Dosage: 30 MG, WE
     Dates: start: 2015

REACTIONS (5)
  - Contusion [Unknown]
  - Exposure via direct contact [Unknown]
  - Drug dose omission [Unknown]
  - Injection site bruising [Unknown]
  - Device use error [Unknown]

NARRATIVE: CASE EVENT DATE: 201512
